FAERS Safety Report 23517379 (Version 3)
Quarter: 2024Q1

REPORT INFORMATION
  Report Type: Spontaneous
  Country: US (occurrence: US)
  Receive Date: 20240213
  Receipt Date: 20240327
  Transmission Date: 20240410
  Serious: No
  Sender: FDA-Public Use
  Company Number: US-PFIZER INC-202400021332

PATIENT
  Age: 67 Year
  Sex: Female
  Weight: 56.7 kg

DRUGS (4)
  1. ESTRING [Suspect]
     Active Substance: ESTRADIOL
     Indication: Coital bleeding
     Dosage: UNK
     Dates: start: 2017
  2. ESTRING [Suspect]
     Active Substance: ESTRADIOL
     Indication: Incontinence
  3. ESTRING [Suspect]
     Active Substance: ESTRADIOL
     Indication: Vulvovaginal dryness
  4. LUVENA FEMININE WIPES [Suspect]
     Active Substance: PRAMOXINE HYDROCHLORIDE

REACTIONS (6)
  - Drug ineffective [Unknown]
  - Device use issue [Unknown]
  - Urinary tract disorder [Unknown]
  - Vulvovaginal pruritus [Unknown]
  - Atrophic vulvovaginitis [Unknown]
  - Disease recurrence [Unknown]
